FAERS Safety Report 21719767 (Version 1)
Quarter: 2022Q4

REPORT INFORMATION
  Report Type: Spontaneous
  Country: US (occurrence: US)
  Receive Date: 20221213
  Receipt Date: 20221213
  Transmission Date: 20230113
  Serious: Yes (Hospitalization)
  Sender: FDA-Public Use
  Company Number: US-GBT-018522

PATIENT
  Age: 53 Year
  Sex: Male

DRUGS (1)
  1. OXBRYTA [Suspect]
     Active Substance: VOXELOTOR
     Indication: Product used for unknown indication
     Route: 048
     Dates: end: 202211

REACTIONS (2)
  - Sickle cell anaemia with crisis [Unknown]
  - Therapy cessation [Unknown]

NARRATIVE: CASE EVENT DATE: 20221101
